FAERS Safety Report 20474417 (Version 1)
Quarter: 2022Q1

REPORT INFORMATION
  Report Type: Spontaneous
  Country: US (occurrence: US)
  Receive Date: 20220215
  Receipt Date: 20220215
  Transmission Date: 20220423
  Serious: Yes (Other)
  Sender: FDA-Public Use
  Company Number: US-GLAXOSMITHKLINE-US2022GSK024152

PATIENT
  Sex: Female

DRUGS (14)
  1. ZANTAC [Suspect]
     Active Substance: RANITIDINE HYDROCHLORIDE
     Indication: Abdominal discomfort
     Dosage: 150 MG, QD
     Route: 065
     Dates: start: 200401, end: 201812
  2. ZANTAC [Suspect]
     Active Substance: RANITIDINE HYDROCHLORIDE
     Dosage: 150 MG, 3 - 4 PILLS PER DAY
     Route: 065
     Dates: start: 200401, end: 201812
  3. ZANTAC [Suspect]
     Active Substance: RANITIDINE HYDROCHLORIDE
     Indication: Abdominal discomfort
     Dosage: 150 MG, QD
     Route: 065
     Dates: start: 200401, end: 201812
  4. ZANTAC [Suspect]
     Active Substance: RANITIDINE HYDROCHLORIDE
     Dosage: 150 MG, 3 - 4 PILLS PER DAY
     Route: 065
     Dates: start: 200401, end: 201812
  5. RANITIDINE [Suspect]
     Active Substance: RANITIDINE
     Indication: Abdominal discomfort
     Dosage: 150 MG, QD
     Route: 065
     Dates: start: 200401, end: 201812
  6. RANITIDINE [Suspect]
     Active Substance: RANITIDINE
     Dosage: 150 MG, 3 - 4 PILLS PER DAY
     Route: 065
     Dates: start: 200401, end: 201812
  7. RANITIDINE [Suspect]
     Active Substance: RANITIDINE
     Indication: Abdominal discomfort
     Dosage: 150 MG, QD
     Route: 065
     Dates: start: 200401, end: 201812
  8. RANITIDINE [Suspect]
     Active Substance: RANITIDINE
     Dosage: 150 MG, 3 - 4 PILLS PER DAY
     Route: 065
     Dates: start: 200401, end: 201812
  9. ZANTAC [Suspect]
     Active Substance: RANITIDINE HYDROCHLORIDE
     Indication: Abdominal discomfort
     Dosage: 150 MG, QD
     Route: 065
     Dates: start: 200401, end: 201812
  10. ZANTAC [Suspect]
     Active Substance: RANITIDINE HYDROCHLORIDE
     Dosage: 150 MG, 3 - 4 PILLS PER DAY
     Route: 065
     Dates: start: 200401, end: 201812
  11. RANITIDINE [Suspect]
     Active Substance: RANITIDINE
     Indication: Abdominal discomfort
     Dosage: 150 MG, QD
     Route: 065
     Dates: start: 200401, end: 201812
  12. RANITIDINE [Suspect]
     Active Substance: RANITIDINE
     Dosage: 150 MG, 3 - 4 PILLS PER DAY
     Route: 065
     Dates: start: 200401, end: 201812
  13. RANITIDINE [Suspect]
     Active Substance: RANITIDINE
     Indication: Abdominal discomfort
     Dosage: 150 MG, QD
     Route: 065
     Dates: start: 200401, end: 201812
  14. RANITIDINE [Suspect]
     Active Substance: RANITIDINE
     Dosage: 150 MG, 3 - 4 PILLS PER DAY
     Route: 065
     Dates: start: 200401, end: 201812

REACTIONS (1)
  - Colorectal cancer [Unknown]
